FAERS Safety Report 4621521-2 (Version None)
Quarter: 2005Q1

REPORT INFORMATION
  Report Type: 
  Country: None (occurrence: None)
  Receive Date: 20050328
  Receipt Date: 20031125
  Transmission Date: 20050727
  Serious: No
  Sender: FDA-Public Use
  Company Number: 9993

PATIENT
  Age: 73 Year
  Sex: Female

DRUGS (14)
  1. METHOTREXATE [Suspect]
     Dosage: 7.5 MG WEEKLY;
     Dates: start: 20010101, end: 20030701
  2. CELECOXIB [Concomitant]
  3. COLECALCIFEROL [Concomitant]
  4. FOLIC ACID [Concomitant]
  5. FUROSEMIDE [Concomitant]
  6. ISOSORBIDE DINITRATE [Concomitant]
  7. LANSOPRAZOLE [Concomitant]
  8. LOSARTAN POTASSIUM [Concomitant]
  9. MONTELUKAST SODIUM [Concomitant]
  10. PARACETAMOL [Concomitant]
  11. PHENPROCOUMON [Concomitant]
  12. POTASSIUM CHLORIDE [Concomitant]
  13. PREDNISOLONE [Concomitant]
  14. TORSEMIDE [Concomitant]

REACTIONS (4)
  - ANXIETY [None]
  - CHEST PAIN [None]
  - HEART RATE INCREASED [None]
  - PRODUCTIVE COUGH [None]
